FAERS Safety Report 6980754-0 (Version None)
Quarter: 2010Q3

REPORT INFORMATION
  Report Type: 
  Country: None (occurrence: None)
  Receive Date: 20100914
  Receipt Date: 20100902
  Transmission Date: 20110219
  Serious: Yes (Other)
  Sender: FDA-Public Use
  Company Number: TR-WATSON-2010-12058

PATIENT
  Age: 58 Year
  Sex: Female

DRUGS (1)
  1. HEPARIN SODIUM [Suspect]
     Indication: ACUTE CORONARY SYNDROME
     Dosage: UNK

REACTIONS (6)
  - DIPLOPIA [None]
  - HYPERCOAGULATION [None]
  - ISCHAEMIA [None]
  - NERVOUS SYSTEM DISORDER [None]
  - REBOUND EFFECT [None]
  - VIITH NERVE PARALYSIS [None]
